FAERS Safety Report 5641009-X (Version None)
Quarter: 2008Q1

REPORT INFORMATION
  Report Type: 
  Country: None (occurrence: None)
  Receive Date: 20080225
  Receipt Date: 20080218
  Transmission Date: 20080703
  Serious: Yes (Death, Hospitalization)
  Sender: FDA-Public Use
  Company Number: ES-JNJFOC-20080200034

PATIENT
  Age: 78 Year
  Sex: Female

DRUGS (8)
  1. DECITABINE (DECITABINE) LYOPHILIZED POWDER [Suspect]
     Indication: ACUTE MYELOID LEUKAEMIA
     Dosage: 20 MG/M2, INTRAVENOUS; 3RD CYCLE
     Route: 042
     Dates: start: 20071126, end: 20080118
  2. DECITABINE (DECITABINE) LYOPHILIZED POWDER [Suspect]
     Indication: ACUTE MYELOID LEUKAEMIA
     Dosage: 20 MG/M2, INTRAVENOUS; 3RD CYCLE
     Route: 042
     Dates: start: 20080114, end: 20080118
  3. ENOXAPARIN SODIUM [Suspect]
     Indication: THROMBOCYTOPENIA
  4. TRAMADOL HCL [Concomitant]
  5. ACETAMINOPHEN [Concomitant]
  6. ASPIRIN [Concomitant]
  7. ACYCLOVIR [Concomitant]
  8. PREDNISONE TAB [Concomitant]

REACTIONS (24)
  - ALANINE AMINOTRANSFERASE INCREASED [None]
  - BLOOD ALKALINE PHOSPHATASE INCREASED [None]
  - BLOOD BILIRUBIN INCREASED [None]
  - BLOOD LACTATE DEHYDROGENASE INCREASED [None]
  - BLOOD PH DECREASED [None]
  - CEREBRAL HAEMORRHAGE [None]
  - COMA [None]
  - CONTUSION [None]
  - DEEP VEIN THROMBOSIS [None]
  - FACIAL PALSY [None]
  - GAMMA-GLUTAMYLTRANSFERASE INCREASED [None]
  - GENERAL PHYSICAL HEALTH DETERIORATION [None]
  - HAEMOGLOBIN DECREASED [None]
  - HYPERGLYCAEMIA [None]
  - HYPOCALCAEMIA [None]
  - HYPOPROTEINAEMIA [None]
  - NEUROLOGICAL SYMPTOM [None]
  - PALLOR [None]
  - PERIPHERAL COLDNESS [None]
  - PERIPHERAL ISCHAEMIA [None]
  - PULMONARY EMBOLISM [None]
  - RENAL FAILURE [None]
  - THROMBOCYTOPENIA [None]
  - WHITE BLOOD CELL COUNT INCREASED [None]
